FAERS Safety Report 6379783-X (Version None)
Quarter: 2009Q3

REPORT INFORMATION
  Report Type: 
  Country: None (occurrence: None)
  Receive Date: 20090924
  Receipt Date: 20090924
  Transmission Date: 20100115
  Serious: Yes (Life-Threatening)
  Sender: FDA-Public Use
  Company Number: None

PATIENT
  Age: 61 Year
  Sex: Male
  Weight: 78.0187 kg

DRUGS (2)
  1. LYRICA [Suspect]
     Indication: SPINAL LAMINECTOMY
     Dosage: 1 TABLET TWICE DAILY PO
     Route: 048
     Dates: start: 20090616, end: 20090719
  2. LYRICA [Suspect]
     Indication: NEUROPATHY PERIPHERAL
     Dosage: 1 TABLET TWICE DAILY PO
     Route: 048
     Dates: start: 20090720, end: 20090722

REACTIONS (1)
  - ARRHYTHMIA [None]
